FAERS Safety Report 6860499-8 (Version None)
Quarter: 2010Q3

REPORT INFORMATION
  Report Type: 
  Country: None (occurrence: None)
  Receive Date: 20100720
  Receipt Date: 20100712
  Transmission Date: 20110219
  Serious: Yes (Hospitalization)
  Sender: FDA-Public Use
  Company Number: A0870737A

PATIENT
  Sex: Male

DRUGS (11)
  1. AVANDIA [Suspect]
     Dosage: 8MG PER DAY
     Route: 048
     Dates: start: 20020801, end: 20041201
  2. LANTUS [Concomitant]
  3. FUROSEMIDE [Concomitant]
  4. COLESTID [Concomitant]
  5. LIPITOR [Concomitant]
  6. COREG [Concomitant]
  7. NITROGLYCERIN [Concomitant]
  8. PAXIL [Concomitant]
  9. LISINOPRIL [Concomitant]
  10. GLIPIZIDE [Concomitant]
  11. GLUCOPHAGE [Concomitant]

REACTIONS (1)
  - MYOCARDIAL INFARCTION [None]
